FAERS Safety Report 4892208-6 (Version None)
Quarter: 2006Q1

REPORT INFORMATION
  Report Type: 
  Country: None (occurrence: None)
  Receive Date: 20060125
  Receipt Date: 20060125
  Transmission Date: 20060701
  Serious: Yes (Hospitalization)
  Sender: FDA-Public Use
  Company Number: None

PATIENT
  Sex: Female

DRUGS (4)
  1. VALSARTAN [Suspect]
     Indication: HYPERTENSION
     Dosage: ORAL, DAILY
     Route: 048
  2. SINGULAIR [Concomitant]
  3. ALBUTEROL SULFATE AUTOHALER [Concomitant]
  4. AZMACORT [Concomitant]

REACTIONS (3)
  - COUGH [None]
  - DYSPNOEA [None]
  - MULTIPLE ALLERGIES [None]
